FAERS Safety Report 15699529 (Version 2)
Quarter: 2019Q1

REPORT INFORMATION
  Report Type: Spontaneous
  Country: FR (occurrence: FR)
  Receive Date: 20181207
  Receipt Date: 20190125
  Transmission Date: 20190417
  Serious: Yes (Death, Life-Threatening)
  Sender: FDA-Public Use
  Company Number: IND-FR-009507513-1811FRA012012

PATIENT
  Age: 69 Year
  Sex: Male
  Weight: 141 kg

DRUGS (8)
  1. PROPOFOL LIPURO [Suspect]
     Active Substance: PROPOFOL
     Indication: INDUCTION OF ANAESTHESIA
     Dosage: 100 MILLIGRAM, UNK
     Route: 042
     Dates: start: 20180912, end: 20180912
  2. ESMERON [Suspect]
     Active Substance: ROCURONIUM BROMIDE
     Indication: INDUCTION OF ANAESTHESIA
     Dosage: 100 MILLIGRAM, UNK
     Route: 042
     Dates: start: 20180912, end: 20180912
  3. LIDOCAINE. [Suspect]
     Active Substance: LIDOCAINE
     Indication: INDUCTION OF ANAESTHESIA
     Dosage: 80 MILLIGRAM, UNK
     Route: 042
     Dates: start: 20180912, end: 20180912
  4. RILMENIDINE [Concomitant]
     Active Substance: RILMENIDINE
  5. COAPROVEL [Concomitant]
     Active Substance: HYDROCHLOROTHIAZIDE\IRBESARTAN
  6. PRAVASTATIN SODIUM. [Concomitant]
     Active Substance: PRAVASTATIN SODIUM
  7. ACEBUTOLOL [Concomitant]
     Active Substance: ACEBUTOLOL
  8. KARDEGIC [Concomitant]
     Active Substance: ASPIRIN DL-LYSINE

REACTIONS (1)
  - Anaphylactic shock [Fatal]

NARRATIVE: CASE EVENT DATE: 20180912
